FAERS Safety Report 7469912-9 (Version None)
Quarter: 2011Q2

REPORT INFORMATION
  Report Type: 
  Country: None (occurrence: None)
  Receive Date: 20110510
  Receipt Date: 20110504
  Transmission Date: 20111010
  Serious: Yes (Hospitalization)
  Sender: FDA-Public Use
  Company Number: US-GILEAD-2011-0038373

PATIENT
  Sex: Male
  Weight: 77.18 kg

DRUGS (7)
  1. HYDROCHLOROTHIAZIDE [Concomitant]
  2. LASIX [Concomitant]
  3. POTASSIUM CHLORIDE [Concomitant]
  4. ZANTAC [Concomitant]
  5. LETAIRIS [Suspect]
     Indication: PULMONARY HYPERTENSION
     Route: 048
     Dates: start: 20090819
  6. SILDENAFIL [Concomitant]
  7. LETAIRIS [Suspect]
     Route: 048
     Dates: start: 20110407

REACTIONS (6)
  - PYREXIA [None]
  - PRODUCTIVE COUGH [None]
  - BRONCHITIS [None]
  - DYSPNOEA [None]
  - OROPHARYNGEAL PAIN [None]
  - DECREASED APPETITE [None]
